FAERS Safety Report 21589374 (Version 2)
Quarter: 2023Q4

REPORT INFORMATION
  Report Type: Report from Study
  Country: IN (occurrence: IN)
  Receive Date: 20221114
  Receipt Date: 20231228
  Transmission Date: 20240110
  Serious: Yes (Other)
  Sender: FDA-Public Use
  Company Number: IN-002147023-NVSC2022IN252902

PATIENT
  Age: 35 Year
  Sex: Female

DRUGS (2)
  1. RIBOCICLIB [Suspect]
     Active Substance: RIBOCICLIB
     Indication: Breast cancer metastatic
     Dosage: 600 MG, QD
     Route: 065
     Dates: start: 20211209
  2. RIBOCICLIB [Suspect]
     Active Substance: RIBOCICLIB
     Dosage: 200 MG
     Route: 048
     Dates: start: 20220909

REACTIONS (7)
  - Breast mass [Unknown]
  - Lymphadenopathy [Unknown]
  - Osteolysis [Unknown]
  - Pain [Unknown]
  - Resorption bone increased [Unknown]
  - Skin hypertrophy [Unknown]
  - Back pain [Unknown]

NARRATIVE: CASE EVENT DATE: 20211209
